FAERS Safety Report 10266072 (Version 2)
Quarter: 2014Q3

REPORT INFORMATION
  Report Type: Spontaneous
  Country: US (occurrence: US)
  Receive Date: 20140627
  Receipt Date: 20140725
  Transmission Date: 20150326
  Serious: No
  Sender: FDA-Public Use
  Company Number: US-PFIZER INC-2014175209

PATIENT
  Age: 76 Year
  Sex: Female
  Weight: 54.42 kg

DRUGS (4)
  1. LISINOPRIL. [Concomitant]
     Active Substance: LISINOPRIL
     Indication: HYPERTENSION
     Dosage: 360 MG, 1X/DAY
  2. LYRICA [Suspect]
     Active Substance: PREGABALIN
     Indication: NEURALGIA
  3. DILTIAZEM [Concomitant]
     Active Substance: DILTIAZEM
     Dosage: 350 MG, 1X/DAY
  4. LYRICA [Suspect]
     Active Substance: PREGABALIN
     Indication: SPINAL PAIN
     Dosage: 100 MG, 3X/DAY
     Route: 048
     Dates: start: 2014, end: 201406

REACTIONS (3)
  - Drug withdrawal syndrome [Unknown]
  - Feeling abnormal [Unknown]
  - Insomnia [Not Recovered/Not Resolved]

NARRATIVE: CASE EVENT DATE: 201406
